FAERS Safety Report 9165936 (Version 3)
Quarter: 2013Q1

REPORT INFORMATION
  Report Type: Report from Study
  Country: US (occurrence: US)
  Receive Date: 20130315
  Receipt Date: 20130327
  Transmission Date: 20140127
  Serious: Yes (Hospitalization)
  Sender: FDA-Public Use
  Company Number: US-JNJFOC-20130306601

PATIENT
  Age: 13 Year
  Sex: Female
  Weight: 45.3 kg

DRUGS (7)
  1. REMIACADE [Suspect]
     Indication: CROHN^S DISEASE
     Route: 042
     Dates: start: 20110204, end: 20111111
  2. CIMZIA [Concomitant]
     Dosage: RECEIVED 3 INDUCTION DOSES
     Route: 065
     Dates: start: 20121019
  3. 6-MERCAPTOPURINE [Concomitant]
     Route: 065
  4. ALLEGRA [Concomitant]
     Route: 065
  5. CALCIUM CITRATE [Concomitant]
     Route: 065
  6. VSL3 [Concomitant]
     Route: 065
  7. MULTIVITAMINS [Concomitant]
     Route: 065

REACTIONS (1)
  - Abdominal pain lower [Recovered/Resolved]
